FAERS Safety Report 5637958-9 (Version None)
Quarter: 2008Q1

REPORT INFORMATION
  Report Type: 
  Country: None (occurrence: None)
  Receive Date: 20080222
  Receipt Date: 20080222
  Transmission Date: 20080703
  Serious: Yes (Hospitalization)
  Sender: FDA-Public Use
  Company Number: None

PATIENT
  Sex: Male
  Weight: 96.4 kg

DRUGS (9)
  1. BUSULFAN [Suspect]
     Dosage: 1072 MG
     Dates: end: 20080201
  2. CYTARABINE [Suspect]
     Dosage: 35.2 G
     Dates: end: 20071215
  3. ETOPOSIDE [Suspect]
     Dosage: 8340 MG
     Dates: end: 20080202
  4. G-CSF (FILGRASTIM, AMGEN) [Suspect]
     Dosage: 5400 MCG
     Dates: end: 20080215
  5. ACYCLOVIR [Concomitant]
  6. ATIVAN [Concomitant]
  7. CLARITHROMYCIN [Concomitant]
  8. FLUCONAZOLE [Concomitant]
  9. LEVAQUIN [Concomitant]

REACTIONS (2)
  - MUCOSAL INFLAMMATION [None]
  - PYREXIA [None]
